FAERS Safety Report 6337443-5 (Version None)
Quarter: 2009Q3

REPORT INFORMATION
  Report Type: 
  Country: None (occurrence: None)
  Receive Date: 20090901
  Receipt Date: 20090901
  Transmission Date: 20100115
  Serious: Yes (Other)
  Sender: FDA-Public Use
  Company Number: None

PATIENT
  Age: 68 Year
  Sex: Female
  Weight: 65.7716 kg

DRUGS (2)
  1. SIMVASTATIN [Suspect]
     Indication: BLOOD CHOLESTEROL INCREASED
     Dosage: 20 MG ONE A DAY IN EVE PO; 20 MG TWO A DAY IN EVE PO
     Route: 048
     Dates: start: 20080828, end: 20090410
  2. SIMVASTATIN [Suspect]
     Indication: BLOOD CHOLESTEROL INCREASED
     Dosage: 20 MG ONE A DAY IN EVE PO; 20 MG TWO A DAY IN EVE PO
     Route: 048
     Dates: start: 20090410, end: 20090528

REACTIONS (9)
  - ARTHRALGIA [None]
  - ARTHRITIS [None]
  - FEELING ABNORMAL [None]
  - GROIN PAIN [None]
  - MUSCLE DISORDER [None]
  - MUSCULOSKELETAL PAIN [None]
  - MUSCULOSKELETAL STIFFNESS [None]
  - NECK PAIN [None]
  - PAIN IN EXTREMITY [None]
